FAERS Safety Report 13270062 (Version 2)
Quarter: 2017Q1

REPORT INFORMATION
  Report Type: Spontaneous
  Country: AU (occurrence: AU)
  Receive Date: 20170224
  Receipt Date: 20170307
  Transmission Date: 20170428
  Serious: Yes (Other)
  Sender: FDA-Public Use
  Company Number: AU-JNJFOC-20170221590

PATIENT
  Sex: Female

DRUGS (1)
  1. REMICADE [Suspect]
     Active Substance: INFLIXIMAB
     Indication: NEUROSARCOIDOSIS
     Route: 042

REACTIONS (9)
  - Cognitive disorder [Unknown]
  - Neoplasm [Unknown]
  - Product use issue [Unknown]
  - Incontinence [Unknown]
  - Drug effect incomplete [Unknown]
  - Hydrocephalus [Unknown]
  - Overdose [Unknown]
  - Off label use [Unknown]
  - Muscular weakness [Unknown]
